FAERS Safety Report 13883580 (Version 2)
Quarter: 2017Q3

REPORT INFORMATION
  Report Type: Spontaneous
  Country: GB (occurrence: GB)
  Receive Date: 20170819
  Receipt Date: 20170830
  Transmission Date: 20171127
  Serious: Yes (Hospitalization, Other)
  Sender: FDA-Public Use
  Company Number: GB-ROCHE-1981302

PATIENT

DRUGS (1)
  1. KADCYLA [Suspect]
     Active Substance: ADO-TRASTUZUMAB EMTANSINE
     Indication: BREAST CANCER
     Route: 065
     Dates: start: 20170814

REACTIONS (7)
  - Pleural effusion [Unknown]
  - Adverse drug reaction [Unknown]
  - Sepsis [Unknown]
  - Septic shock [Unknown]
  - Renal failure [Unknown]
  - Respiratory failure [Unknown]
  - Nephritis [Unknown]
